FAERS Safety Report 4326208-1 (Version None)
Quarter: 2004Q1

REPORT INFORMATION
  Report Type: 
  Country: None (occurrence: None)
  Receive Date: 20040319
  Receipt Date: 20040107
  Transmission Date: 20041129
  Serious: No
  Sender: FDA-Public Use
  Company Number: US-JNJFOC-20040101423

PATIENT
  Age: 34 Year
  Sex: Female
  Weight: 75.7507 kg

DRUGS (3)
  1. ORTHO EVRA [Suspect]
     Indication: CONTRACEPTION
     Dosage: 1 DOSE(S), 3 IN 4 WEEK, TRANSDERMAL
     Route: 062
     Dates: start: 20040104
  2. PROZAC [Concomitant]
  3. MULTIVITAMIN (MULTIVITAMINS) [Concomitant]

REACTIONS (4)
  - ABDOMINAL PAIN [None]
  - DIARRHOEA [None]
  - HEADACHE [None]
  - NAUSEA [None]
